FAERS Safety Report 24799009 (Version 3)
Quarter: 2025Q1

REPORT INFORMATION
  Report Type: Spontaneous
  Country: RU (occurrence: RU)
  Receive Date: 20250102
  Receipt Date: 20250206
  Transmission Date: 20250409
  Serious: Yes (Hospitalization, Other)
  Sender: SANOFI AVENTIS
  Company Number: RU-BIOVITRUM-2024-RU-016623

PATIENT
  Age: 12 Year
  Sex: Male

DRUGS (4)
  1. EFMOROCTOCOG ALFA [Suspect]
     Active Substance: EFMOROCTOCOG ALFA
     Indication: Factor VIII deficiency
     Route: 065
     Dates: start: 202305
  2. EFMOROCTOCOG ALFA [Suspect]
     Active Substance: EFMOROCTOCOG ALFA
     Indication: Factor VIII deficiency
     Route: 065
     Dates: start: 202305
  3. EFMOROCTOCOG ALFA [Suspect]
     Active Substance: EFMOROCTOCOG ALFA
     Dosage: 50 IU/KG, QOD
     Route: 065
  4. EFMOROCTOCOG ALFA [Suspect]
     Active Substance: EFMOROCTOCOG ALFA
     Dosage: 50 IU/KG, QOD
     Route: 065

REACTIONS (1)
  - Acute abdomen [Unknown]

NARRATIVE: CASE EVENT DATE: 20240101
